FAERS Safety Report 8779562 (Version 3)
Quarter: 2012Q4

REPORT INFORMATION
  Report Type: Report from Study
  Country: CA (occurrence: CA)
  Receive Date: 20120912
  Receipt Date: 20121005
  Transmission Date: 20130627
  Serious: Yes (Other)
  Sender: FDA-Public Use
  Company Number: CA-ABBOTT-12P-028-0976514-00

PATIENT
  Age: 36 Year
  Sex: Male
  Weight: 61.74 kg

DRUGS (3)
  1. HUMIRA [Suspect]
     Indication: CROHN^S DISEASE
     Route: 058
     Dates: start: 20100518
  2. CANNABIS SATIVA SUBSP. INDICA TOP [Suspect]
     Indication: PRODUCT USED FOR UNKNOWN INDICATION
     Dates: start: 20120901
  3. PANTOLOC [Concomitant]
     Indication: PRODUCT USED FOR UNKNOWN INDICATION

REACTIONS (13)
  - Grand mal convulsion [Unknown]
  - Cerebrosclerosis [Unknown]
  - Demyelination [Unknown]
  - Dizziness [Unknown]
  - Feeling abnormal [Unknown]
  - Dehydration [Unknown]
  - Vertigo [Unknown]
  - Staring [Unknown]
  - Dysarthria [Unknown]
  - Dysphagia [Unknown]
  - Aphagia [Unknown]
  - Fluid intake reduced [Unknown]
  - Migraine [Unknown]
